FAERS Safety Report 15010662 (Version 4)
Quarter: 2019Q2

REPORT INFORMATION
  Report Type: Report from Study
  Country: None (occurrence: US)
  Receive Date: 20180614
  Receipt Date: 20190624
  Transmission Date: 20190711
  Serious: Yes (Other)
  Sender: FDA-Public Use
  Company Number: US-ABBVIE-18K-163-2384672-00

PATIENT
  Age: 59 Year
  Sex: Female
  Weight: 59.02 kg

DRUGS (2)
  1. HUMIRA [Suspect]
     Active Substance: ADALIMUMAB
     Indication: RHEUMATOID ARTHRITIS
     Route: 058
  2. HUMIRA [Suspect]
     Active Substance: ADALIMUMAB
     Route: 058

REACTIONS (11)
  - Joint swelling [Recovering/Resolving]
  - Loss of consciousness [Not Recovered/Not Resolved]
  - Burns first degree [Recovering/Resolving]
  - Peripheral swelling [Unknown]
  - Product lot number issue [Unknown]
  - Systemic lupus erythematosus [Unknown]
  - Limb deformity [Unknown]
  - Disability [Unknown]
  - Nerve compression [Unknown]
  - Headache [Unknown]
  - Osteoarthritis [Unknown]

NARRATIVE: CASE EVENT DATE: 2018
